FAERS Safety Report 13262102 (Version 1)
Quarter: 2017Q1

REPORT INFORMATION
  Report Type: Spontaneous
  Country: GB (occurrence: GB)
  Receive Date: 20170222
  Receipt Date: 20170222
  Transmission Date: 20170428
  Serious: Yes (Other)
  Sender: FDA-Public Use
  Company Number: GB-BAUSCH-BL-2017-004374

PATIENT
  Age: 20 Year
  Sex: Male

DRUGS (4)
  1. SORAFENIB [Concomitant]
     Active Substance: SORAFENIB
     Indication: HEPATOCELLULAR CARCINOMA
  2. SORAFENIB [Concomitant]
     Active Substance: SORAFENIB
     Indication: METASTASES TO LUNG
  3. FLUOROURACIL. [Suspect]
     Active Substance: FLUOROURACIL
     Indication: HEPATOCELLULAR CARCINOMA
     Route: 065
  4. OXALIPLATIN. [Suspect]
     Active Substance: OXALIPLATIN
     Indication: HEPATOCELLULAR CARCINOMA
     Route: 065

REACTIONS (2)
  - Gastrointestinal toxicity [Unknown]
  - Bone marrow toxicity [Unknown]
